FAERS Safety Report 9206307 (Version 1)
Quarter: 2013Q2

REPORT INFORMATION
  Report Type: Other
  Country: GB (occurrence: GB)
  Receive Date: 20130403
  Receipt Date: 20130403
  Transmission Date: 20140414
  Serious: Yes (Death, Hospitalization, Other)
  Sender: FDA-Public Use
  Company Number: GB-MPIJNJ-2013-02308

PATIENT
  Sex: 0

DRUGS (9)
  1. VELCADE [Suspect]
     Indication: PLASMA CELL MYELOMA
     Dosage: 1.3 MG/M2, UNK
     Route: 058
     Dates: start: 20121205, end: 20130116
  2. ACICLOVIR [Concomitant]
     Dosage: 400 MG, UNK
     Route: 048
     Dates: start: 20130109
  3. CLOMIPRAMINE [Concomitant]
     Dosage: 25 MG, UNK
     Route: 048
     Dates: end: 20130228
  4. CYCLOPHOSPHAMIDE [Concomitant]
     Dosage: 250 MG, UNK
     Route: 048
     Dates: start: 20121030, end: 20130116
  5. DEXAMETHASONE [Concomitant]
     Dosage: 20 MG, UNK
     Route: 048
  6. FLUCONAZOLE [Concomitant]
     Dosage: 100 MG, UNK
     Route: 048
     Dates: start: 20121204, end: 20130228
  7. LANSOPRAZOLE [Concomitant]
     Dosage: 30 MG, UNK
     Route: 048
     Dates: start: 20121030, end: 20130228
  8. LITHIUM [Concomitant]
     Dosage: 400 MG, UNK
     Route: 048
     Dates: start: 20080101
  9. TAMSULOSIN [Concomitant]
     Dosage: 400 UG
     Route: 048
     Dates: start: 20120614, end: 20130215

REACTIONS (3)
  - Death [Fatal]
  - Myoclonus [Recovered/Resolved]
  - Intestinal obstruction [Recovered/Resolved]
